FAERS Safety Report 10055632 (Version 1)
Quarter: 2014Q2

REPORT INFORMATION
  Report Type: Spontaneous
  Country: US (occurrence: None)
  Receive Date: 20140402
  Receipt Date: 20140402
  Transmission Date: 20141212
  Serious: Yes (Other)
  Sender: FDA-Public Use
  Company Number: None

PATIENT
  Age: 71 Year
  Sex: Male
  Weight: 79.38 kg

DRUGS (1)
  1. POMALIDOMIDE [Suspect]
     Indication: PLASMA CELL MYELOMA
     Dosage: 1 PILL, ONCE DAILY, TAKEN BY MOUTH
     Route: 048
     Dates: start: 20140306, end: 20140326

REACTIONS (3)
  - Pruritus [None]
  - Pruritus [None]
  - Rash pruritic [None]
